FAERS Safety Report 8903282 (Version 2)
Quarter: 2012Q4

REPORT INFORMATION
  Report Type: 
  Country: US (occurrence: US)
  Receive Date: 20121113
  Receipt Date: 20121205
  Transmission Date: 20130627
  Serious: Yes (Other)
  Sender: FDA-Public Use
  Company Number: US-PFIZER INC-2012281485

PATIENT
  Age: 83 Year
  Sex: Female
  Weight: 49.43 kg

DRUGS (4)
  1. ACCUPRIL [Suspect]
     Indication: BLOOD PRESSURE ABNORMAL
     Dosage: 40 mg, two times a day
     Dates: end: 20120828
  2. GLUCOTROL XL [Concomitant]
     Indication: DIABETES
     Dosage: 10 mg
  3. JANUVIA [Concomitant]
     Indication: DIABETES
     Dosage: UNK
  4. METFORMIN [Concomitant]
     Indication: DIABETES
     Dosage: UNK

REACTIONS (4)
  - Myocardial infarction [Unknown]
  - Cardiac disorder [Unknown]
  - Feeling abnormal [Unknown]
  - Insomnia [Unknown]
